FAERS Safety Report 10503879 (Version 5)
Quarter: 2014Q4

REPORT INFORMATION
  Report Type: Spontaneous
  Country: US (occurrence: None)
  Receive Date: 20141006
  Receipt Date: 20141209
  Transmission Date: 20150528
  Serious: Yes (Hospitalization)
  Sender: FDA-Public Use
  Company Number: 2014SGN01227

PATIENT
  Age: 58 Year
  Sex: Male
  Weight: 91 kg

DRUGS (9)
  1. ALLOPURINOL (ALLOPURINOL) [Concomitant]
     Active Substance: ALLOPURINOL
  2. ACETAMINOPHEN (ACETAMINOPHEN) [Concomitant]
     Active Substance: ACETAMINOPHEN
  3. SENNA [Concomitant]
     Active Substance: SENNA LEAF\SENNOSIDES\SENNOSIDES A AND B
  4. RISPERIDONE (RISPERIDONE) [Concomitant]
     Active Substance: RISPERIDONE
  5. DOCUSATE SODIUM (DOCUSATE SODIUM) [Concomitant]
     Active Substance: DOCUSATE SODIUM
  6. OMEPRAZOLE (OMEPRAZOLE) [Concomitant]
     Active Substance: OMEPRAZOLE
  7. BRENTUXIMAB VEDOTIN (BRENTUXIMAB VEDOTIN) INJECTION [Suspect]
     Active Substance: BRENTUXIMAB VEDOTIN
     Indication: DIFFUSE LARGE B-CELL LYMPHOMA
     Dosage: 1.8 MG/KG, Q21D
     Route: 042
     Dates: start: 20140814, end: 20140905
  8. CODEINE (CODEINE PHOSPHATE HEMIHYDRATE) [Concomitant]
  9. MAGNESIUM OXIDE (MAGNESIUM OXIDE) [Concomitant]
     Active Substance: MAGNESIUM OXIDE

REACTIONS (7)
  - Failure to thrive [None]
  - Malaise [None]
  - Abdominal pain [None]
  - Lethargy [None]
  - Diffuse large B-cell lymphoma [None]
  - General physical health deterioration [None]
  - Disease progression [None]

NARRATIVE: CASE EVENT DATE: 20140919
